FAERS Safety Report 6315865-6 (Version None)
Quarter: 2009Q3

REPORT INFORMATION
  Report Type: 
  Country: None (occurrence: None)
  Receive Date: 20090818
  Receipt Date: 20090811
  Transmission Date: 20100115
  Serious: Yes (Other)
  Sender: FDA-Public Use
  Company Number: CHPA2009US16945

PATIENT
  Age: 83 Year
  Sex: Female
  Weight: 113.4 kg

DRUGS (1)
  1. MAALOX ANTACID/ANTIGAS MAX QDTABS ASST (NCH) (CALCIUM CARBONATE, SIMET [Suspect]
     Indication: ANTACID THERAPY
     Dosage: 1 DF, BID, ORAL
     Route: 048
     Dates: start: 19840101

REACTIONS (3)
  - BREAST CANCER [None]
  - CHOLECYSTECTOMY [None]
  - HYPERTENSION [None]
